FAERS Safety Report 10010766 (Version 1)
Quarter: 2014Q1

REPORT INFORMATION
  Report Type: Spontaneous
  Country: GB (occurrence: None)
  Receive Date: 20140311
  Receipt Date: 20140311
  Transmission Date: 20141002
  Serious: Yes (Hospitalization)
  Sender: FDA-Public Use
  Company Number: AUR-APL-2014-02601

PATIENT
  Age: 64 Year
  Sex: Male

DRUGS (4)
  1. MODAFINIL [Suspect]
     Indication: RESPIRATORY FAILURE
     Route: 048
  2. BUMETANIDE (BUMETANIDE) [Concomitant]
  3. SYMBICORT (BUDESONIDE W/FORMOTEROL FUMARATE) [Concomitant]
  4. TIOTROPIUM (TIOTROPIUM) (TIOTROPIUM) [Concomitant]

REACTIONS (12)
  - Somnolence [None]
  - Headache [None]
  - Weight decreased [None]
  - Lower respiratory tract infection [None]
  - Right ventricular failure [None]
  - Oedema peripheral [None]
  - Sleep apnoea syndrome [None]
  - Cor pulmonale [None]
  - Hypoxia [None]
  - Malaise [None]
  - Cyanosis [None]
  - Decreased activity [None]
